FAERS Safety Report 6676262-7 (Version None)
Quarter: 2010Q1

REPORT INFORMATION
  Report Type: 
  Country: None (occurrence: None)
  Receive Date: 20100331
  Receipt Date: 20090723
  Transmission Date: 20100710
  Serious: Yes (Hospitalization)
  Sender: FDA-Public Use
  Company Number: 2009238069

PATIENT
  Sex: Male
  Weight: 123.8 kg

DRUGS (1)
  1. SUNITINIB MALATE [Suspect]
     Dosage: 50 MG

REACTIONS (1)
  - CONVULSION [None]
